FAERS Safety Report 8224819-4 (Version None)
Quarter: 2012Q1

REPORT INFORMATION
  Report Type: 
  Country: None (occurrence: None)
  Receive Date: 20120321
  Receipt Date: 20120316
  Transmission Date: 20120608
  Serious: Yes (Death, Hospitalization, Other)
  Sender: FDA-Public Use
  Company Number: US-CELGENEUS-163-21880-12031984

PATIENT
  Sex: Male

DRUGS (5)
  1. WHOLE BLOOD [Concomitant]
     Dosage: 12 UNITS
     Route: 065
  2. DEXMEDETOMIDINE HYDROCHLORIDE [Concomitant]
     Route: 065
  3. SYNTHROID [Concomitant]
     Route: 065
  4. PLATELETS [Concomitant]
     Dosage: 12 UNITS
     Route: 065
  5. REVLIMID [Suspect]
     Indication: MULTIPLE MYELOMA
     Dosage: 15 MILLIGRAM
     Route: 048
     Dates: start: 20070601, end: 20120101

REACTIONS (13)
  - DEATH [None]
  - ASPIRATION [None]
  - HERPES ZOSTER [None]
  - DEHYDRATION [None]
  - CANDIDIASIS [None]
  - PNEUMONIA [None]
  - DYSPHAGIA [None]
  - OESOPHAGEAL ULCER [None]
  - ANAEMIA [None]
  - STOMATITIS [None]
  - ANTIBIOTIC RESISTANT STAPHYLOCOCCUS TEST [None]
  - EPISTAXIS [None]
  - SINUSITIS [None]
